FAERS Safety Report 9664179 (Version 1)
Quarter: 2013Q4

REPORT INFORMATION
  Report Type: Spontaneous
  Country: FR (occurrence: FR)
  Receive Date: 20131101
  Receipt Date: 20131101
  Transmission Date: 20140711
  Serious: Yes (Hospitalization)
  Sender: FDA-Public Use
  Company Number: FR-SA-2013SA108492

PATIENT
  Age: 87 Year
  Sex: Male

DRUGS (9)
  1. LASILIX FAIBLE [Suspect]
     Indication: PRODUCT USED FOR UNKNOWN INDICATION
     Route: 048
     Dates: start: 201206, end: 20130927
  2. STRUCTUM [Suspect]
     Indication: PRODUCT USED FOR UNKNOWN INDICATION
     Route: 048
     Dates: start: 20130419, end: 201309
  3. ALL OTHER THERAPEUTIC PRODUCTS [Concomitant]
     Dosage: APPLICATION FOR FACE
     Route: 061
  4. METRONIDAZOLE [Concomitant]
     Dosage: APPLICATION FOR FACE
     Route: 061
  5. TADENAN [Concomitant]
     Dosage: STRENGTH: 50 MG
     Route: 048
  6. DISCOTRINE [Concomitant]
     Dosage: 5 MG/24 HR?PATCH
     Route: 062
  7. EXFORGE [Concomitant]
     Dosage: 5 MG/80 MG STRENGTH
     Route: 048
     Dates: start: 200910
  8. DOLIPRANE [Concomitant]
     Dosage: 500 MG
     Route: 048
  9. ZYLORIC [Concomitant]
     Dates: end: 201308

REACTIONS (2)
  - Eczema [Not Recovered/Not Resolved]
  - Eosinophilia [Not Recovered/Not Resolved]
